FAERS Safety Report 5213045-9 (Version None)
Quarter: 2007Q1

REPORT INFORMATION
  Report Type: 
  Country: None (occurrence: None)
  Receive Date: 20070117
  Receipt Date: 20070102
  Transmission Date: 20070707
  Serious: Yes (Hospitalization)
  Sender: FDA-Public Use
  Company Number: 2006US002938

PATIENT
  Age: 64 Year
  Sex: Female

DRUGS (4)
  1. FK506E (MR4) (TACROLIMUS) CAPSULES [Suspect]
     Indication: RENAL TRANSPLANT
     Dosage: 4 MG, UID/QD, ORAL
     Route: 048
     Dates: start: 20031205, end: 20061218
  2. CELLCEPT [Concomitant]
  3. MYFORTIC (MYCOPHENOLATE SODIUM) [Concomitant]
  4. METHYLPREDNISOLONE [Concomitant]

REACTIONS (4)
  - DISORIENTATION [None]
  - PYELONEPHRITIS [None]
  - PYONEPHROSIS [None]
  - SEPTIC SHOCK [None]
